FAERS Safety Report 5463620-1 (Version None)
Quarter: 2007Q3

REPORT INFORMATION
  Report Type: 
  Country: None (occurrence: None)
  Receive Date: 20070919
  Receipt Date: 20070907
  Transmission Date: 20080115
  Serious: Yes (Hospitalization)
  Sender: FDA-Public Use
  Company Number: 237182K07USA

PATIENT
  Age: 41 Year
  Sex: Female

DRUGS (3)
  1. REBIF [Suspect]
     Indication: MULTIPLE SCLEROSIS
     Dosage: 44 MCG, 3 IN 1 WEEKS, SUBCUTANEOUS
     Route: 058
     Dates: start: 20030709
  2. PREMARIN [Suspect]
  3. AMANTADINE (AMANTADINE/ 00055901/) [Concomitant]

REACTIONS (5)
  - BLADDER PAIN [None]
  - GASTROINTESTINAL PAIN [None]
  - MULTIPLE SCLEROSIS [None]
  - OVARIAN CYST [None]
  - PAIN [None]
